FAERS Safety Report 9275889 (Version 1)
Quarter: 2013Q2

REPORT INFORMATION
  Report Type: Spontaneous
  Country: FR (occurrence: FR)
  Receive Date: 20130507
  Receipt Date: 20130507
  Transmission Date: 20140414
  Serious: Yes (Death, Hospitalization)
  Sender: FDA-Public Use
  Company Number: FR-PFIZER INC-HQWYE725009FEB06

PATIENT
  Age: 84 Year
  Sex: Male

DRUGS (14)
  1. INIPOMP [Suspect]
     Indication: ABDOMINAL PAIN UPPER
     Dosage: UNKNOWN
     Route: 048
     Dates: start: 20050322, end: 20050324
  2. INIPOMP [Suspect]
     Indication: PELVIC PAIN
  3. KEFANDOL [Suspect]
     Indication: PROPHYLAXIS
     Dosage: ^DF^
     Route: 065
     Dates: start: 20050322, end: 20050324
  4. FLUIMUCIL [Concomitant]
     Route: 065
  5. LYTOS [Concomitant]
     Route: 048
  6. ARICEPT [Concomitant]
     Route: 048
  7. ESTRACYT [Concomitant]
     Route: 048
  8. DURAGESIC [Concomitant]
     Route: 062
  9. LOVENOX [Concomitant]
     Dosage: UNK
     Route: 030
     Dates: start: 20050322, end: 20050322
  10. HYPNOVEL [Concomitant]
     Dosage: UNK
     Route: 065
     Dates: start: 20050322, end: 20050322
  11. PERFALGAN [Concomitant]
     Dosage: UNK
     Route: 042
     Dates: start: 20050322, end: 20050323
  12. PERFALGAN [Concomitant]
     Dosage: UNK
     Route: 042
     Dates: start: 20050328, end: 20050329
  13. CORTANCYL [Concomitant]
     Route: 048
  14. PYOSTACINE [Concomitant]
     Route: 048

REACTIONS (6)
  - Pancytopenia [Fatal]
  - Gingival bleeding [Unknown]
  - Haematuria [Unknown]
  - Petechiae [Unknown]
  - Cerebral haemorrhage [Unknown]
  - Coma [Unknown]
